FAERS Safety Report 24238947 (Version 1)
Quarter: 2024Q3

REPORT INFORMATION
  Report Type: Spontaneous
  Country: CN (occurrence: CN)
  Receive Date: 20240822
  Receipt Date: 20240822
  Transmission Date: 20241017
  Serious: Yes (Hospitalization, Other)
  Sender: SANOFI AVENTIS
  Company Number: CN-SA-SAC20240821000029

PATIENT
  Age: 71 Year
  Sex: Female
  Weight: 82 kg

DRUGS (6)
  1. CLOPIDOGREL BISULFATE [Suspect]
     Active Substance: CLOPIDOGREL BISULFATE
     Indication: Chest pain
     Dosage: 75 MG, QD
     Route: 048
     Dates: start: 20240727, end: 20240728
  2. CLOPIDOGREL BISULFATE [Suspect]
     Active Substance: CLOPIDOGREL BISULFATE
     Indication: Chest discomfort
  3. CLOPIDOGREL BISULFATE [Suspect]
     Active Substance: CLOPIDOGREL BISULFATE
     Indication: Coronary arterial stent insertion
  4. ASPIRIN [Suspect]
     Active Substance: ASPIRIN
     Indication: Chest discomfort
     Dosage: 100 MG, QD
     Route: 048
     Dates: start: 20240727, end: 20240728
  5. ASPIRIN [Suspect]
     Active Substance: ASPIRIN
     Indication: Chest pain
  6. ASPIRIN [Suspect]
     Active Substance: ASPIRIN
     Indication: Coronary arterial stent insertion

REACTIONS (7)
  - Cerebrospinal fluid leakage [Recovered/Resolved]
  - Discharge [Recovered/Resolved]
  - Rhinorrhoea [Unknown]
  - Epistaxis [Recovered/Resolved]
  - Extravasation blood [Recovered/Resolved]
  - Ear haemorrhage [Recovered/Resolved]
  - Eye haemorrhage [Recovered/Resolved]

NARRATIVE: CASE EVENT DATE: 20240728
